FAERS Safety Report 17466464 (Version 1)
Quarter: 2020Q1

REPORT INFORMATION
  Report Type: Spontaneous
  Country: DK (occurrence: DK)
  Receive Date: 20200227
  Receipt Date: 20200227
  Transmission Date: 20200409
  Serious: Yes (Hospitalization, Disabling)
  Sender: FDA-Public Use
  Company Number: DK-ROCHE-2552849

PATIENT
  Age: 66 Year
  Sex: Female

DRUGS (4)
  1. PREDNISOLONE. [Concomitant]
     Active Substance: PREDNISOLONE
     Indication: RHEUMATOID ARTHRITIS
     Dosage: STYRKE: UKENDT.?DOSIS: UKENDT.
     Route: 065
     Dates: start: 2016
  2. KENALOG [Concomitant]
     Active Substance: TRIAMCINOLONE ACETONIDE
     Indication: RHEUMATOID ARTHRITIS
     Dosage: STYRKE: UKENDT.?DOSIS: UKENDT.
     Route: 065
     Dates: start: 201611
  3. ROACTEMRA [Suspect]
     Active Substance: TOCILIZUMAB
     Indication: RHEUMATOID ARTHRITIS
     Dosage: STRENGTH: 20 MG/ML.
     Route: 042
     Dates: start: 20140814, end: 20190221
  4. METHOTREXATE. [Concomitant]
     Active Substance: METHOTREXATE
     Indication: RHEUMATOID ARTHRITIS
     Dosage: STYRKE: 2,5 MG.?DOSIS: UKENDT.
     Route: 048
     Dates: start: 20140416, end: 20191122

REACTIONS (10)
  - Abdominal pain lower [Recovered/Resolved]
  - Vaginal discharge [Recovered/Resolved]
  - Female genital tract fistula [Recovered/Resolved]
  - Abdominal pain [Recovered/Resolved]
  - Hysterosalpingectomy [Recovered/Resolved]
  - Intestinal resection [Recovered/Resolved with Sequelae]
  - Salpingectomy [Recovered/Resolved]
  - Diverticulitis [Recovered/Resolved]
  - Uterine infection [Recovered/Resolved]
  - Vaginal haemorrhage [Recovered/Resolved]

NARRATIVE: CASE EVENT DATE: 2016
